FAERS Safety Report 8359797-0 (Version None)
Quarter: 2012Q2

REPORT INFORMATION
  Report Type: 
  Country: None (occurrence: None)
  Receive Date: 20120515
  Receipt Date: 20120508
  Transmission Date: 20120825
  Serious: Yes (Other)
  Sender: FDA-Public Use
  Company Number: PHHY2011US26657

PATIENT
  Sex: Female

DRUGS (10)
  1. FOSAMAX [Concomitant]
  2. RECLAST [Suspect]
     Dosage: UNK UKN, UNK
     Route: 042
     Dates: start: 20120201
  3. ACTONEL [Concomitant]
  4. CALCIUM AND ERGOCALCIFEROL [Concomitant]
  5. PROPRANOLOL [Concomitant]
     Indication: TREMOR
     Dosage: 20 MG, BID
  6. CALCITONIN SALMON [Concomitant]
  7. MAGNESIUM [Concomitant]
  8. RECLAST [Suspect]
     Indication: OSTEOPOROSIS
     Dosage: 5 MG, ONCE A YEAR
     Route: 042
     Dates: start: 20110217
  9. PROPYL-THIOURACIL [Concomitant]
     Indication: HYPOTHYROIDISM
     Dosage: 20 MG, BID
  10. TEMAZEPAM [Concomitant]
     Indication: INSOMNIA
     Dosage: 15 MG, UNK

REACTIONS (17)
  - ABDOMINAL PAIN [None]
  - THYROID DISORDER [None]
  - AMNESIA [None]
  - HYPERTHYROIDISM [None]
  - MYALGIA [None]
  - BALANCE DISORDER [None]
  - THYROID CANCER [None]
  - CALCINOSIS [None]
  - GAIT DISTURBANCE [None]
  - ATROPHY [None]
  - INFLUENZA LIKE ILLNESS [None]
  - MALAISE [None]
  - VERTIGO [None]
  - NECK PAIN [None]
  - PAIN [None]
  - FATIGUE [None]
  - DIZZINESS [None]
